FAERS Safety Report 23907348 (Version 1)
Quarter: 2024Q2

REPORT INFORMATION
  Report Type: Report from Study
  Country: CH (occurrence: CH)
  Receive Date: 20240528
  Receipt Date: 20240528
  Transmission Date: 20240715
  Serious: Yes (Death)
  Sender: FDA-Public Use
  Company Number: CH-ABBVIE-5776520

PATIENT
  Sex: Male

DRUGS (4)
  1. CARBIDOPA\LEVODOPA [Suspect]
     Active Substance: CARBIDOPA\LEVODOPA
     Indication: Parkinson^s disease
     Dosage: MD: 6ML, CRD: 2.6 ML/H, ED: 2.7 ML.?16H THERAPY
     Route: 050
     Dates: start: 20230908, end: 20231005
  2. CARBIDOPA\LEVODOPA [Suspect]
     Active Substance: CARBIDOPA\LEVODOPA
     Dosage: MD: 6ML, CRD: 2.6 ML/H, ED: 0.0 ML.?16H THERAPY
     Route: 050
     Dates: start: 20231005, end: 20231018
  3. CARBIDOPA\LEVODOPA [Suspect]
     Active Substance: CARBIDOPA\LEVODOPA
     Route: 050
     Dates: start: 20130117
  4. CARBIDOPA\LEVODOPA [Suspect]
     Active Substance: CARBIDOPA\LEVODOPA
     Dosage: MD: 6ML, CRD: 3.0 ML/H, ED: 2.7 ML.?16H THERAPY
     Route: 050
     Dates: start: 20231018, end: 20240526

REACTIONS (1)
  - General physical health deterioration [Fatal]
